FAERS Safety Report 20206839 (Version 1)
Quarter: 2021Q4

REPORT INFORMATION
  Report Type: Other
  Country: CA (occurrence: CA)
  Receive Date: 20211220
  Receipt Date: 20211220
  Transmission Date: 20220303
  Serious: Yes (Hospitalization)
  Sender: FDA-Public Use
  Company Number: CA-PFIZER INC-202101739643

PATIENT
  Age: 36 Year
  Sex: Female

DRUGS (2)
  1. TESTOSTERONE [Suspect]
     Active Substance: TESTOSTERONE
     Indication: Transgender hormonal therapy
     Route: 065
  2. TESTOSTERONE [Suspect]
     Active Substance: TESTOSTERONE
     Route: 062

REACTIONS (4)
  - Adnexal torsion [Unknown]
  - Ovarian cancer stage II [Unknown]
  - Ovarian endometrioid carcinoma [Unknown]
  - Ovarian necrosis [Unknown]
